FAERS Safety Report 5063668-5 (Version None)
Quarter: 2006Q3

REPORT INFORMATION
  Report Type: 
  Country: None (occurrence: None)
  Receive Date: 20060724
  Receipt Date: 20060718
  Transmission Date: 20061208
  Serious: Yes (Hospitalization)
  Sender: FDA-Public Use
  Company Number: LTI2006A00179

PATIENT
  Age: 46 Year
  Sex: Male

DRUGS (3)
  1. ACTOS [Suspect]
     Indication: DIABETES MELLITUS NON-INSULIN-DEPENDENT
     Dosage: 1 DF (1 DF, 1 IN 2)  - DAYS SEE IMAGE
     Dates: start: 20060315, end: 20060401
  2. ACTOS [Suspect]
     Indication: DIABETES MELLITUS NON-INSULIN-DEPENDENT
     Dosage: 1 DF (1 DF, 1 IN 2)  - DAYS SEE IMAGE
     Dates: start: 20060101
  3. HYPERIUM (RILMENIDINE) [Suspect]
     Indication: HYPERTENSION
     Dosage: DAYS
     Dates: start: 20060315, end: 20060401

REACTIONS (3)
  - DISTURBANCE IN ATTENTION [None]
  - SOMNOLENCE [None]
  - SUICIDAL IDEATION [None]
